FAERS Safety Report 20351031 (Version 1)
Quarter: 2022Q1

REPORT INFORMATION
  Report Type: Spontaneous
  Country: US (occurrence: None)
  Receive Date: 20220118
  Receipt Date: 20220118
  Transmission Date: 20220423
  Serious: Yes (Hospitalization)
  Sender: FDA-Public Use
  Company Number: None

PATIENT
  Age: 66 Year
  Sex: Female

DRUGS (10)
  1. CASIRIVIMAB\IMDEVIMAB [Suspect]
     Active Substance: CASIRIVIMAB\IMDEVIMAB
     Indication: COVID-19
     Dosage: OTHER FREQUENCY : ONCE;?
     Route: 058
     Dates: start: 20220104, end: 20220104
  2. albuterol HFA (VENTOLIN HFA) 90 mcg/actuation inhaler [Concomitant]
  3. atorvastatin (LIPITOR) 40 mg tablet [Concomitant]
  4. FLUoxetine (PROzac) 40 mg capsule [Concomitant]
  5. fluticasone-umeclidin-vilanter (Trelegy Ellipta) 100-62.5-25 mcg blist [Concomitant]
  6. HYDROcodone-acetaminophen (NORCO) 5-325 mg per tablet (C-II) [Concomitant]
  7. metoprolol tartrate (LOPRESSOR) 50 mg tablet [Concomitant]
  8. montelukast (SINGULAIR) 10 mg tablet [Concomitant]
  9. omeprazole (PriLOSEC) 40 mg capsule [Concomitant]
  10. QUEtiapine (SEROquel) 25 mg tablet [Concomitant]

REACTIONS (9)
  - Acute respiratory failure [None]
  - Drug ineffective [None]
  - Dyspnoea [None]
  - Asthenia [None]
  - Body temperature increased [None]
  - Aspartate aminotransferase increased [None]
  - Fibrin D dimer increased [None]
  - Haemoglobin decreased [None]
  - Gastroenteritis viral [None]

NARRATIVE: CASE EVENT DATE: 20220109
